FAERS Safety Report 13173897 (Version 2)
Quarter: 2018Q1

REPORT INFORMATION
  Report Type: Spontaneous
  Country: US (occurrence: US)
  Receive Date: 20170131
  Receipt Date: 20180126
  Transmission Date: 20180508
  Serious: Yes (Other)
  Sender: FDA-Public Use
  Company Number: US-ABBVIE-16K-163-1668464-00

PATIENT
  Sex: Female

DRUGS (3)
  1. COLCHICINE. [Concomitant]
     Active Substance: COLCHICINE
     Indication: PRODUCT USED FOR UNKNOWN INDICATION
  2. HUMIRA [Suspect]
     Active Substance: ADALIMUMAB
     Indication: HIDRADENITIS
     Route: 058
  3. MINOCYCLINE [Suspect]
     Active Substance: MINOCYCLINE\MINOCYCLINE HYDROCHLORIDE
     Indication: PRODUCT USED FOR UNKNOWN INDICATION
     Route: 065

REACTIONS (12)
  - Itching scar [Unknown]
  - Drug ineffective [Unknown]
  - Plantar fasciitis [Unknown]
  - Scar pain [Unknown]
  - Depression [Unknown]
  - Anxiety [Unknown]
  - Hidradenitis [Unknown]
  - Polycystic ovaries [Unknown]
  - Pain of skin [Unknown]
  - Exposure during pregnancy [Unknown]
  - Drug hypersensitivity [Unknown]
  - Wound infection staphylococcal [Unknown]

NARRATIVE: CASE EVENT DATE: 2015
